FAERS Safety Report 7717704 (Version 3)
Quarter: 2013Q1

REPORT INFORMATION
  Report Type: Spontaneous
  Country: CA (occurrence: CA)
  Receive Date: 20101217
  Receipt Date: 20130227
  Transmission Date: 20140127
  Serious: Yes (Hospitalization, Other)
  Sender: FDA-Public Use
  Company Number: CA-ABBOTT-06P-028-0324507-00

PATIENT
  Age: 21 None
  Sex: Female
  Weight: 63.56 kg

DRUGS (20)
  1. BIAXIN [Suspect]
     Indication: BRONCHITIS
     Dates: start: 20050903
  2. BIAXIN [Suspect]
     Indication: PNEUMONIA
     Route: 048
     Dates: start: 200512
  3. LITHIUM CARBONATE [Suspect]
     Indication: PRODUCT USED FOR UNKNOWN INDICATION
     Dosage: 300MG AM AND 600MG HS
     Dates: start: 200511
  4. LITHIUM CARBONATE [Suspect]
     Dates: start: 200512
  5. LITHIUM CARBONATE [Suspect]
     Dates: start: 200601
  6. LITHIUM CARBONATE [Suspect]
     Dates: start: 200602
  7. LITHIUM CARBONATE [Suspect]
     Dosage: 150MG AM AND 300MG HS
     Dates: start: 200602
  8. LITHIUM CARBONATE [Suspect]
     Dosage: AT BEDTIME
     Dates: start: 200603
  9. LITHIUM CARBONATE [Suspect]
     Dosage: AT BEDTIME
     Dates: start: 200603, end: 200603
  10. ZYPREXA [Suspect]
     Indication: HYPOMANIA
     Dates: start: 200509
  11. ZYPREXA [Suspect]
     Dates: start: 2005, end: 200510
  12. ZYPREXA [Suspect]
     Dates: start: 200511
  13. ZYPREXA [Suspect]
     Dates: start: 200512
  14. ZYPREXA [Suspect]
     Dates: start: 20060404
  15. ZYPREXA [Suspect]
     Dates: start: 20060418
  16. ZYPREXA [Suspect]
     Dates: start: 20060502
  17. ZYPREXA [Suspect]
     Dates: start: 20060530
  18. ZYPREXA [Suspect]
     Dates: start: 20060627, end: 20060727
  19. MARVELON [Concomitant]
     Indication: PRODUCT USED FOR UNKNOWN INDICATION
     Dates: end: 2010
  20. IMOVANE [Concomitant]
     Indication: PRODUCT USED FOR UNKNOWN INDICATION
     Dosage: AT BEDTIME

REACTIONS (63)
  - Bipolar disorder [Recovered/Resolved]
  - Psychotic disorder [Unknown]
  - Hypomania [Recovered/Resolved]
  - Delirium [Recovered/Resolved]
  - Aggression [Recovered/Resolved]
  - Delirium [Unknown]
  - Aggression [Unknown]
  - Condition aggravated [Unknown]
  - Aggression [Unknown]
  - Disinhibition [Unknown]
  - Logorrhoea [Recovered/Resolved]
  - Dyskinesia [Recovered/Resolved]
  - Tachyphrenia [Recovered/Resolved]
  - Libido increased [Recovered/Resolved]
  - Insomnia [Recovered/Resolved]
  - Irritability [Recovered/Resolved]
  - Weight decreased [Unknown]
  - Confusional state [Recovered/Resolved]
  - Loss of consciousness [Recovered/Resolved]
  - Emotional poverty [Recovered/Resolved]
  - Libido decreased [Recovered/Resolved]
  - Sluggishness [Recovered/Resolved]
  - Thought blocking [Recovered/Resolved]
  - Bronchitis [Unknown]
  - Disturbance in attention [Recovered/Resolved]
  - Cognitive disorder [Recovered/Resolved]
  - Unevaluable event [Recovered/Resolved]
  - Hallucination, visual [Recovered/Resolved]
  - Substance-induced psychotic disorder [Recovered/Resolved]
  - Suicidal ideation [Recovered/Resolved]
  - Self esteem decreased [Unknown]
  - Psychiatric symptom [Unknown]
  - Eye pain [Unknown]
  - Oropharyngeal pain [Unknown]
  - Pharyngitis [Unknown]
  - Psychomotor hyperactivity [Recovered/Resolved]
  - Nodule [Unknown]
  - Upper respiratory tract infection [Unknown]
  - Pharyngitis streptococcal [Unknown]
  - Conjunctivitis [Unknown]
  - Genital herpes [Unknown]
  - Fungal infection [Unknown]
  - Arthralgia [Unknown]
  - Gastroenteritis [Unknown]
  - Agitation [Recovered/Resolved]
  - Nausea [Unknown]
  - Hallucinations, mixed [Recovered/Resolved]
  - Hypophagia [Recovered/Resolved]
  - Emotional disorder [Recovered/Resolved]
  - Paraphilia [Recovered/Resolved]
  - Inappropriate affect [Recovered/Resolved]
  - Paranoia [Recovered/Resolved]
  - Cough [Unknown]
  - Tremor [Recovered/Resolved]
  - Somnolence [Recovered/Resolved]
  - Disturbance in attention [Recovered/Resolved]
  - Anxiety [Unknown]
  - Decreased appetite [Unknown]
  - Dizziness [Unknown]
  - Weight increased [Unknown]
  - Abnormal behaviour [Recovered/Resolved]
  - Agitation [Recovered/Resolved]
  - Chest X-ray abnormal [Unknown]
